FAERS Safety Report 23502109 (Version 1)
Quarter: 2024Q1

REPORT INFORMATION
  Report Type: Spontaneous
  Country: US (occurrence: US)
  Receive Date: 20240208
  Receipt Date: 20240208
  Transmission Date: 20240410
  Serious: No
  Sender: FDA-Public Use
  Company Number: US-SA-SAC20240205000794

PATIENT
  Sex: Female
  Weight: 87.9 kg

DRUGS (1)
  1. DUPIXENT [Suspect]
     Active Substance: DUPILUMAB
     Indication: Dermatitis atopic
     Dosage: DOSE: 300 MG FREQUENCY : EVERY 2 WEEKS
     Route: 058
     Dates: start: 20220810

REACTIONS (1)
  - Injection site bruising [Recovered/Resolved]
